FAERS Safety Report 4499560-4 (Version None)
Quarter: 2004Q4

REPORT INFORMATION
  Report Type: 
  Country: None (occurrence: None)
  Receive Date: 20040928
  Receipt Date: 20040812
  Transmission Date: 20050328
  Serious: No
  Sender: FDA-Public Use
  Company Number: 04P-163-0270431-00

PATIENT
  Age: 83 Year
  Sex: Female

DRUGS (5)
  1. HUMIRA [Suspect]
     Indication: RHEUMATOID ARTHRITIS
     Dosage: 40 MG 1 IN 2 WK SUBCUTANEOUS
     Route: 058
     Dates: start: 20040610, end: 20040617
  2. METHOTREXATE [Concomitant]
  3. ROFECOXIB [Concomitant]
  4. PREDNISONE [Concomitant]
  5. FOLIC ACID [Concomitant]

REACTIONS (1)
  - HERPES ZOSTER [None]
